FAERS Safety Report 5258076-8 (Version None)
Quarter: 2007Q1

REPORT INFORMATION
  Report Type: 
  Country: None (occurrence: None)
  Receive Date: 20070307
  Receipt Date: 20070302
  Transmission Date: 20070707
  Serious: Yes (Hospitalization)
  Sender: FDA-Public Use
  Company Number: JP-SHR-JP-2007-003047

PATIENT
  Age: 31 Year
  Sex: Female

DRUGS (8)
  1. BETASERON [Suspect]
     Indication: RELAPSING-REMITTING MULTIPLE SCLEROSIS
     Dosage: 8 MIU, EVERY 2D
     Route: 058
     Dates: start: 20040519
  2. LOXONIN [Concomitant]
     Indication: HEADACHE
     Dosage: 60 MG, 1X/DAY
     Route: 048
     Dates: start: 20040224
  3. TERNELIN [Concomitant]
     Dosage: 1 MG, 1X/DAY
     Route: 048
     Dates: start: 20040224, end: 20040615
  4. TERNELIN [Concomitant]
     Dosage: 3 MG, 1X/DAY
     Route: 048
     Dates: start: 20040616
  5. TALION [Concomitant]
     Indication: RHINITIS ALLERGIC
     Dosage: 10 MG, 1X/DAY
     Route: 048
     Dates: start: 20040224
  6. ACINON [Concomitant]
     Indication: GASTRIC ULCER
     Dosage: 300 MG, 1X/DAY
     Route: 048
     Dates: start: 20040324
  7. LAXOBERON [Concomitant]
     Indication: CONSTIPATION
     Dosage: 1 ML, 1X/DAY
     Route: 048
     Dates: start: 20040714
  8. AMOBAN [Concomitant]
     Indication: INSOMNIA
     Dosage: 7.5 MG, 1X/DAY
     Route: 048
     Dates: start: 20050704

REACTIONS (2)
  - MULTIPLE DRUG OVERDOSE INTENTIONAL [None]
  - SUICIDE ATTEMPT [None]
